FAERS Safety Report 4320971-1 (Version None)
Quarter: 2004Q1

REPORT INFORMATION
  Report Type: 
  Country: None (occurrence: None)
  Receive Date: 20040322
  Receipt Date: 20040322
  Transmission Date: 20041129
  Serious: Yes (Other)
  Sender: FDA-Public Use
  Company Number: None

PATIENT
  Age: 49 Year
  Sex: Male
  Weight: 102.5129 kg

DRUGS (1)
  1. ADDERALL XR 30 [Suspect]
     Indication: ATTENTION DEFICIT/HYPERACTIVITY DISORDER
     Dosage: ONE CAP DAILY ORAL
     Route: 048
     Dates: start: 20040213, end: 20040302

REACTIONS (3)
  - FEELING ABNORMAL [None]
  - ORAL PAIN [None]
  - STEVENS-JOHNSON SYNDROME [None]
